FAERS Safety Report 6607962-2 (Version None)
Quarter: 2010Q1

REPORT INFORMATION
  Report Type: 
  Country: None (occurrence: None)
  Receive Date: 20100301
  Receipt Date: 20100217
  Transmission Date: 20100710
  Serious: Yes (Other)
  Sender: FDA-Public Use
  Company Number: IT-GENZYME-THYM-1001388

PATIENT

DRUGS (1)
  1. THYMOGLOBULIN [Suspect]
     Indication: APLASTIC ANAEMIA
     Dosage: 3.75 MG/KG, QDX5
     Route: 042

REACTIONS (5)
  - BACTERIAL INFECTION [None]
  - CYTOMEGALOVIRUS INFECTION [None]
  - EPSTEIN-BARR VIRUS INFECTION [None]
  - FUNGAL INFECTION [None]
  - RENAL FAILURE [None]
